FAERS Safety Report 7831974-4 (Version None)
Quarter: 2011Q4

REPORT INFORMATION
  Report Type: 
  Country: None (occurrence: None)
  Receive Date: 20111021
  Receipt Date: 20111019
  Transmission Date: 20120403
  Serious: Yes (Hospitalization, Congenital Anomaly)
  Sender: FDA-Public Use
  Company Number: US-ROCHE-GNE323488

PATIENT

DRUGS (8)
  1. PREVACID [Concomitant]
     Indication: GASTROOESOPHAGEAL REFLUX DISEASE
     Dosage: 15 ML, BID
     Route: 048
     Dates: start: 20110323, end: 20110329
  2. OMALIZUMAB [Suspect]
     Indication: PRODUCT USED FOR UNKNOWN INDICATION
     Dosage: 375 MG, UNK
     Route: 064
     Dates: start: 20060324
  3. ALBUTEROL [Concomitant]
     Dosage: UNK
     Route: 055
     Dates: start: 20110423, end: 20110425
  4. ALBUTEROL [Concomitant]
     Dosage: UNK
     Route: 055
     Dates: start: 20110529, end: 20110601
  5. PREVACID [Concomitant]
     Dosage: 15 ML, BID
     Route: 048
     Dates: start: 20110407
  6. ALBUTEROL [Concomitant]
     Dosage: UNK
     Route: 055
     Dates: start: 20110423, end: 20110425
  7. ALBUTEROL [Concomitant]
     Indication: BRONCHIOLITIS
     Dosage: UNK
     Route: 055
     Dates: start: 20110329, end: 20110407
  8. ZANTAC [Concomitant]
     Indication: GASTROOESOPHAGEAL REFLUX DISEASE
     Dosage: UNK
     Route: 048
     Dates: start: 20110329, end: 20110407

REACTIONS (2)
  - BRONCHIOLITIS [None]
  - BRONCHOMALACIA [None]
